FAERS Safety Report 9379712 (Version 1)
Quarter: 2013Q2

REPORT INFORMATION
  Report Type: Spontaneous
  Country: FR (occurrence: None)
  Receive Date: 20130627
  Receipt Date: 20130627
  Transmission Date: 20140414
  Serious: Yes (Other)
  Sender: FDA-Public Use
  Company Number: 2013P1010038

PATIENT
  Age: 3 Week
  Sex: Female

DRUGS (1)
  1. HYDROXYCHLOROQUINE [Suspect]
     Route: 064

REACTIONS (3)
  - Maternal drugs affecting foetus [None]
  - Burns second degree [None]
  - Photosensitivity reaction [None]
